FAERS Safety Report 15458530 (Version 2)
Quarter: 2018Q4

REPORT INFORMATION
  Report Type: Spontaneous
  Country: JP (occurrence: JP)
  Receive Date: 20181003
  Receipt Date: 20181017
  Transmission Date: 20190204
  Serious: Yes (Other)
  Sender: FDA-Public Use
  Company Number: JP-ROCHE-2192006

PATIENT
  Age: 70 Year
  Sex: Female

DRUGS (3)
  1. BONVIVA [Suspect]
     Active Substance: IBANDRONATE SODIUM
     Indication: OSTEOPOROSIS
     Route: 042
     Dates: start: 20180601, end: 20180706
  2. MENATETRENONE [Concomitant]
     Active Substance: MENATETRENONE
     Route: 048
     Dates: start: 20180420
  3. EDIROL [Concomitant]
     Active Substance: ELDECALCITOL
     Route: 048
     Dates: start: 20180420

REACTIONS (6)
  - Neuropathy peripheral [Recovered/Resolved]
  - Cellulitis [Recovered/Resolved]
  - Nerve injury [Recovered/Resolved]
  - Injection site joint pain [Recovered/Resolved]
  - Muscular weakness [Recovered/Resolved]
  - Injection site joint swelling [Recovered/Resolved]

NARRATIVE: CASE EVENT DATE: 20180706
